FAERS Safety Report 6356780-1 (Version None)
Quarter: 2009Q3

REPORT INFORMATION
  Report Type: 
  Country: None (occurrence: None)
  Receive Date: 20090911
  Receipt Date: 20090911
  Transmission Date: 20100115
  Serious: Yes (Other)
  Sender: FDA-Public Use
  Company Number: None

PATIENT
  Age: 65 Year
  Sex: Male
  Weight: 96.1626 kg

DRUGS (1)
  1. PEROXICARE (BAKING SODA + PEROXIDE) 0.9 OZ. (25 G) WEIGHT CHURCH + DWI [Suspect]
     Indication: DENTAL CARE
     Dosage: DAB OF TOOTHPASTE APPROX. 0.005 OZ. ONCE/DAY 004 08/2009 - 1 MIN BRUSHING TEETH
     Dates: start: 20090801

REACTIONS (6)
  - CHAPPED LIPS [None]
  - GINGIVAL PAIN [None]
  - GINGIVAL SWELLING [None]
  - LIP HAEMORRHAGE [None]
  - LIP PAIN [None]
  - LIP SWELLING [None]
